FAERS Safety Report 5157947-0 (Version None)
Quarter: 2006Q4

REPORT INFORMATION
  Report Type: 
  Country: None (occurrence: None)
  Receive Date: 20061116
  Receipt Date: 20061108
  Transmission Date: 20070319
  Serious: Yes (Hospitalization, Other)
  Sender: FDA-Public Use
  Company Number: 2006058131

PATIENT
  Age: 38 Year
  Sex: Female
  Weight: 65.7716 kg

DRUGS (5)
  1. ZOLOFT [Suspect]
     Indication: DEPRESSION
     Dosage: 100 MG (100 MG, 1 IN 1 D), ORAL; 10 YRS
     Route: 048
  2. ZOLOFT [Suspect]
     Indication: PANIC DISORDER
     Dosage: 100 MG (100 MG, 1 IN 1 D), ORAL; 10 YRS
     Route: 048
  3. PAXIL [Suspect]
     Indication: PANIC DISORDER
     Dosage: 30 MG
     Dates: start: 20060201, end: 20060201
  4. ALL OTHER THERAPEUTIC PRODUCTS [Concomitant]
  5. XANAX [Concomitant]

REACTIONS (26)
  - ABDOMINAL PAIN LOWER [None]
  - AMNESIA [None]
  - ANXIETY [None]
  - CONFUSIONAL STATE [None]
  - CRYING [None]
  - DISTURBANCE IN ATTENTION [None]
  - DRUG EXPOSURE BEFORE PREGNANCY [None]
  - DRUG EXPOSURE DURING PREGNANCY [None]
  - DRUG INEFFECTIVE [None]
  - EMOTIONAL DISORDER [None]
  - FEELING ABNORMAL [None]
  - ILL-DEFINED DISORDER [None]
  - IMPAIRED DRIVING ABILITY [None]
  - JUDGEMENT IMPAIRED [None]
  - MAJOR DEPRESSION [None]
  - MALAISE [None]
  - MUSCLE TWITCHING [None]
  - NERVOUS SYSTEM DISORDER [None]
  - OPTIC NEURITIS [None]
  - PAIN [None]
  - PHOTOPHOBIA [None]
  - POSTPARTUM DEPRESSION [None]
  - SUICIDAL IDEATION [None]
  - VISION BLURRED [None]
  - VISUAL DISTURBANCE [None]
  - WEIGHT DECREASED [None]
